FAERS Safety Report 6416027-4 (Version None)
Quarter: 2009Q4

REPORT INFORMATION
  Report Type: 
  Country: None (occurrence: None)
  Receive Date: 20091027
  Receipt Date: 20091021
  Transmission Date: 20100525
  Serious: Yes (Death)
  Sender: FDA-Public Use
  Company Number: JP-AVENTIS-200912921JP

PATIENT

DRUGS (3)
  1. TAXOTERE [Suspect]
     Route: 041
  2. CISPLATIN [Concomitant]
  3. 5-FU                               /00098801/ [Concomitant]

REACTIONS (1)
  - OESOPHAGOBRONCHIAL FISTULA [None]
